FAERS Safety Report 14039081 (Version 2)
Quarter: 2017Q4

REPORT INFORMATION
  Report Type: Report from Study
  Country: US (occurrence: US)
  Receive Date: 20171004
  Receipt Date: 20171027
  Transmission Date: 20180321
  Serious: Yes (Hospitalization)
  Sender: FDA-Public Use
  Company Number: US-ASTRAZENECA-2017SF00651

PATIENT
  Age: 16047 Day
  Sex: Male
  Weight: 52.1 kg

DRUGS (6)
  1. GABAPENTIN. [Concomitant]
     Active Substance: GABAPENTIN
     Route: 065
     Dates: start: 20170808
  2. PILOCARPINE. [Concomitant]
     Active Substance: PILOCARPINE
     Route: 065
     Dates: start: 20170725
  3. MEDI4736 [Suspect]
     Active Substance: DURVALUMAB
     Indication: HEAD AND NECK CANCER
     Route: 042
     Dates: start: 20170829, end: 20170912
  4. ADXS11-001 [Suspect]
     Active Substance: INVESTIGATIONAL PRODUCT
     Indication: HEAD AND NECK CANCER
     Route: 042
     Dates: start: 20170829, end: 20170912
  5. MORPHINE [Concomitant]
     Active Substance: MORPHINE
     Route: 065
  6. FENTANYL. [Concomitant]
     Active Substance: FENTANYL
     Route: 065
     Dates: start: 20170725

REACTIONS (1)
  - Upper respiratory tract infection [Recovered/Resolved with Sequelae]

NARRATIVE: CASE EVENT DATE: 20170923
